FAERS Safety Report 18387442 (Version 1)
Quarter: 2020Q4

REPORT INFORMATION
  Report Type: Spontaneous
  Country: US (occurrence: US)
  Receive Date: 20201015
  Receipt Date: 20201015
  Transmission Date: 20210114
  Serious: No
  Sender: FDA-Public Use
  Company Number: US-MYLANLABS-2020M1084838

PATIENT
  Age: 75 Year
  Sex: Female

DRUGS (2)
  1. ESTRADIOL VAGINAL CREAM USP [Suspect]
     Active Substance: ESTRADIOL
     Indication: VAGINAL PROLAPSE
  2. ESTRADIOL VAGINAL CREAM USP [Suspect]
     Active Substance: ESTRADIOL
     Indication: INCONTINENCE
     Dosage: 0.01 MILLIGRAM, QD (TWICE A WEEK)
     Route: 062

REACTIONS (2)
  - Off label use [Not Recovered/Not Resolved]
  - Product packaging quantity issue [Not Recovered/Not Resolved]

NARRATIVE: CASE EVENT DATE: 20201002
